FAERS Safety Report 9473815 (Version 2)
Quarter: 2013Q3

REPORT INFORMATION
  Report Type: Spontaneous
  Country: US (occurrence: US)
  Receive Date: 20130823
  Receipt Date: 20130823
  Transmission Date: 20140515
  Serious: No
  Sender: FDA-Public Use
  Company Number: US-BRISTOL-MYERS SQUIBB COMPANY-17013947

PATIENT
  Age: 54 Year
  Sex: Female
  Weight: 109.75 kg

DRUGS (2)
  1. SPRYCEL [Suspect]
     Indication: CHRONIC MYELOID LEUKAEMIA
     Dosage: 30 DAY SPRYCEL KIT
     Route: 048
     Dates: start: 20120928
  2. VITAMINS [Concomitant]

REACTIONS (1)
  - Diarrhoea [Unknown]
